FAERS Safety Report 20371053 (Version 1)
Quarter: 2022Q1

REPORT INFORMATION
  Report Type: Report from Study
  Country: GB (occurrence: GB)
  Receive Date: 20220124
  Receipt Date: 20220124
  Transmission Date: 20220424
  Serious: Yes (Other)
  Sender: FDA-Public Use
  Company Number: GB-SAMSUNG BIOEPIS-SB-2021-23638

PATIENT
  Age: 57 Year
  Sex: Female

DRUGS (2)
  1. IMRALDI [Suspect]
     Active Substance: ADALIMUMAB
     Indication: Rheumatoid arthritis
     Route: 058
     Dates: start: 20210916
  2. FLUOXETINE [Concomitant]
     Active Substance: FLUOXETINE HYDROCHLORIDE
     Indication: Product used for unknown indication
     Dosage: UNKNOWN?MAXIMUM DOSE
     Route: 065

REACTIONS (14)
  - Rheumatoid arthritis [Not Recovered/Not Resolved]
  - Sensation of foreign body [Not Recovered/Not Resolved]
  - Seasonal allergy [Unknown]
  - Pruritus [Recovered/Resolved]
  - Nausea [Not Recovered/Not Resolved]
  - Abdominal discomfort [Unknown]
  - Migraine [Unknown]
  - Insomnia [Recovering/Resolving]
  - Gait disturbance [Unknown]
  - Loss of personal independence in daily activities [Unknown]
  - Depression [Unknown]
  - Fatigue [Unknown]
  - Skin irritation [Unknown]
  - Therapeutic product effect incomplete [Unknown]

NARRATIVE: CASE EVENT DATE: 20211010
